FAERS Safety Report 5054298-X (Version None)
Quarter: 2006Q3

REPORT INFORMATION
  Report Type: 
  Country: None (occurrence: None)
  Receive Date: 20060713
  Receipt Date: 20060706
  Transmission Date: 20061208
  Serious: No
  Sender: FDA-Public Use
  Company Number: TAP2006Q01158

PATIENT
  Age: 71 Year
  Sex: Male

DRUGS (5)
  1. LUPRON DEPOT-4 [Suspect]
     Indication: PROSTATE CANCER
     Dosage: 30 MG, 1 IN 4 M, INTRAMUSCULAR
     Route: 030
     Dates: start: 19980101
  2. NIFEDIPINE [Concomitant]
  3. CLONIDINE [Concomitant]
  4. LIPITOR [Concomitant]
  5. FERROUS SULFATE TAB [Concomitant]

REACTIONS (2)
  - DIALYSIS [None]
  - RENAL FAILURE [None]
